FAERS Safety Report 7905757-0 (Version None)
Quarter: 2011Q4

REPORT INFORMATION
  Report Type: 
  Country: None (occurrence: None)
  Receive Date: 20111108
  Receipt Date: 20111014
  Transmission Date: 20120403
  Serious: Yes (Other)
  Sender: FDA-Public Use
  Company Number: 54973 AE# 615

PATIENT
  Age: 59 Year
  Sex: Male

DRUGS (9)
  1. ZETIA [Concomitant]
  2. ATENOLOL [Concomitant]
  3. LEXAPRO [Concomitant]
  4. COZAAR [Concomitant]
  5. PLAVIX [Concomitant]
  6. METFORMIN [Concomitant]
  7. LOVAZA [Suspect]
     Dosage: 1 BID E. 2 BID, DAILY
     Dates: end: 20110930
  8. LIPITOR [Concomitant]
  9. HYLAND'S CALMS FORTE [Suspect]
     Indication: INSOMNIA
     Dosage: 3 TABLETS AT BEDTIME
     Dates: start: 20110930, end: 20111012

REACTIONS (3)
  - NO THERAPEUTIC RESPONSE [None]
  - CHEST PAIN [None]
  - DYSPNOEA [None]
